FAERS Safety Report 4403884-6 (Version None)
Quarter: 2004Q3

REPORT INFORMATION
  Report Type: 
  Country: None (occurrence: None)
  Receive Date: 20040719
  Receipt Date: 20040713
  Transmission Date: 20050211
  Serious: Yes (Other)
  Sender: FDA-Public Use
  Company Number: 2004-06-0428

PATIENT
  Age: 35 Year
  Sex: Female

DRUGS (2)
  1. AERIUS (DESLORATADINE) TABLETS 'LIKE CLARINEX' [Suspect]
     Indication: POLYMORPHIC LIGHT ERUPTION
     Dosage: 5 MG QD ORAL
     Route: 048
     Dates: start: 20040525, end: 20040607
  2. AMINOBENZOIC ACID [Concomitant]

REACTIONS (7)
  - CONDITION AGGRAVATED [None]
  - DYSPNOEA EXERTIONAL [None]
  - FEELING ABNORMAL [None]
  - HEART RATE IRREGULAR [None]
  - NAUSEA [None]
  - PALPITATIONS [None]
  - WEIGHT INCREASED [None]
